FAERS Safety Report 13780848 (Version 1)
Quarter: 2017Q3

REPORT INFORMATION
  Report Type: Other
  Country: TR (occurrence: US)
  Receive Date: 20170724
  Receipt Date: 20170724
  Transmission Date: 20171127
  Serious: No
  Sender: FDA-Public Use
  Company Number: US-BIO PRODUCTS LABORATORY LTD-2023662

PATIENT
  Age: 6 Year
  Sex: Male
  Weight: 18 kg

DRUGS (1)
  1. GAMMAPLEX [Suspect]
     Active Substance: HUMAN IMMUNOGLOBULIN G
     Indication: HENOCH-SCHONLEIN PURPURA

REACTIONS (2)
  - Off label use [Unknown]
  - Therapeutic response unexpected [Unknown]
